FAERS Safety Report 24945667 (Version 1)
Quarter: 2025Q1

REPORT INFORMATION
  Report Type: Report from Study
  Country: US (occurrence: US)
  Receive Date: 20250209
  Receipt Date: 20250209
  Transmission Date: 20250408
  Serious: Yes (Other)
  Sender: JOHNSON AND JOHNSON
  Company Number: US-JNJFOC-20250186015

PATIENT
  Age: 5 Decade
  Sex: Male

DRUGS (2)
  1. SPRAVATO [Suspect]
     Active Substance: ESKETAMINE
     Indication: Depression
     Route: 045
     Dates: start: 20241106, end: 20241106
  2. SPRAVATO [Suspect]
     Active Substance: ESKETAMINE
     Dosage: ^84 MG, 15 TOTAL DOSES^
     Route: 045
     Dates: start: 20241108, end: 20250123

REACTIONS (3)
  - Depressed level of consciousness [Unknown]
  - Product dose omission issue [Unknown]
  - Sinusitis [Unknown]
